FAERS Safety Report 8570831 (Version 4)
Quarter: 2013Q2

REPORT INFORMATION
  Report Type: Spontaneous
  Country: US (occurrence: US)
  Receive Date: 20120521
  Receipt Date: 20130514
  Transmission Date: 20140414
  Serious: Yes (Life-Threatening, Congenital Anomaly, Other)
  Sender: FDA-Public Use
  Company Number: US-PFIZER INC-2011283011

PATIENT
  Sex: Male

DRUGS (16)
  1. ZOLOFT [Suspect]
     Indication: DEPRESSION
     Dosage: 25 MG, 1X/DAY
     Route: 064
     Dates: start: 200712, end: 200806
  2. ZOLOFT [Suspect]
     Dosage: 50 MG, 1X/DAY
     Route: 064
     Dates: start: 20100401, end: 20100419
  3. PRENATAL VITAMINS [Concomitant]
     Dosage: 1X/DAY
     Route: 064
     Dates: start: 2010, end: 2010
  4. ASPIRIN [Concomitant]
     Indication: PAIN
     Dosage: OCCASIONALLY AS NEEDED
     Route: 064
  5. ASPIRIN [Concomitant]
     Indication: PAIN
  6. MOTRIN [Concomitant]
     Indication: PAIN
     Dosage: OCCASIONALLY AS NEEDED
     Route: 064
  7. MOTRIN [Concomitant]
     Indication: PAIN
  8. IBUPROFEN [Concomitant]
     Indication: PAIN
     Dosage: OCCASIONALLY AS NEEDED
     Route: 064
  9. IBUPROFEN [Concomitant]
     Indication: PAIN
  10. ALEVE [Concomitant]
     Indication: PAIN
     Dosage: OCCASIONALLY AS NEEDED
     Route: 064
  11. ALEVE [Concomitant]
     Indication: PAIN
  12. NYQUIL [Concomitant]
     Indication: NASOPHARYNGITIS
     Dosage: UNK
     Route: 064
  13. DAYQUIL [Concomitant]
     Indication: NASOPHARYNGITIS
     Dosage: UNK
     Route: 064
  14. SUDAFED [Concomitant]
     Indication: NASOPHARYNGITIS
     Dosage: UNK
     Route: 064
  15. CLARITIN [Concomitant]
     Indication: HYPERSENSITIVITY
     Dosage: UNK
     Route: 064
  16. BENADRYL [Concomitant]
     Indication: HYPERSENSITIVITY
     Dosage: UNK
     Route: 064

REACTIONS (3)
  - Maternal exposure during pregnancy [Unknown]
  - Congenital anomaly [Unknown]
  - Anomalous pulmonary venous connection [Unknown]
